FAERS Safety Report 8481999-3 (Version None)
Quarter: 2012Q3

REPORT INFORMATION
  Report Type: 
  Country: None (occurrence: None)
  Receive Date: 20120702
  Receipt Date: 20120626
  Transmission Date: 20120928
  Serious: Yes (Hospitalization, Other)
  Sender: FDA-Public Use
  Company Number: PHHY2012MX056209

PATIENT
  Sex: Female

DRUGS (1)
  1. EXFORGE HCT [Suspect]
     Indication: HYPERTENSION
     Dosage: 1 DF (160/5/12.5 MG), PER DAY
     Dates: start: 20110722, end: 20120401

REACTIONS (3)
  - CEREBRAL CYST [None]
  - DEPRESSION [None]
  - BLOOD PRESSURE INCREASED [None]
